FAERS Safety Report 10278465 (Version 10)
Quarter: 2015Q2

REPORT INFORMATION
  Report Type: Spontaneous
  Country: FR (occurrence: FR)
  Receive Date: 20140704
  Receipt Date: 20150422
  Transmission Date: 20150821
  Serious: Yes (Life-Threatening, Other)
  Sender: FDA-Public Use
  Company Number: PHHY2014FR082358

PATIENT
  Age: 46 Year
  Sex: Male
  Weight: 70 kg

DRUGS (8)
  1. LEPONEX [Interacting]
     Active Substance: CLOZAPINE
     Dosage: 25 MG, QD
     Route: 048
  2. TERCIAN [Concomitant]
     Active Substance: CYAMEMAZINE
     Indication: PRODUCT USED FOR UNKNOWN INDICATION
     Dosage: UNK
     Route: 065
  3. LEPONEX [Interacting]
     Active Substance: CLOZAPINE
     Dosage: 300 MG, QD
     Route: 048
  4. LEPONEX [Suspect]
     Active Substance: CLOZAPINE
     Indication: SCHIZOPHRENIA
     Dosage: 300 MG, QD
     Route: 048
  5. LEPONEX [Interacting]
     Active Substance: CLOZAPINE
     Dosage: 200 MG, QD
     Route: 048
     Dates: start: 2013, end: 20140702
  6. DEPAKINE [Interacting]
     Active Substance: VALPROATE SODIUM
     Indication: PRODUCT USED FOR UNKNOWN INDICATION
     Dosage: 500 MG, BID
     Route: 048
  7. LITHIUM. [Concomitant]
     Active Substance: LITHIUM
     Indication: PRODUCT USED FOR UNKNOWN INDICATION
     Dosage: UNK
     Route: 065
  8. IMOVANE [Concomitant]
     Active Substance: ZOPICLONE
     Indication: PRODUCT USED FOR UNKNOWN INDICATION
     Dosage: UNK
     Route: 065

REACTIONS (19)
  - Drug interaction [Unknown]
  - Drug ineffective [Unknown]
  - Pollakiuria [Unknown]
  - Constipation [Recovering/Resolving]
  - Gastrointestinal disorder [Unknown]
  - Constipation [Recovered/Resolved]
  - Asthma [Recovered/Resolved]
  - Functional gastrointestinal disorder [Unknown]
  - Urinary tract pain [Unknown]
  - Schizophrenia [Unknown]
  - Chromaturia [Unknown]
  - Delusion [Unknown]
  - Delirium [Unknown]
  - Incoherent [Unknown]
  - Somnolence [Not Recovered/Not Resolved]
  - Renal failure [Unknown]
  - Faecal volume increased [Unknown]
  - Salivary hypersecretion [Recovered/Resolved]
  - Hypersomnia [Not Recovered/Not Resolved]

NARRATIVE: CASE EVENT DATE: 2013
